FAERS Safety Report 19787430 (Version 1)
Quarter: 2021Q3

REPORT INFORMATION
  Report Type: Spontaneous
  Country: US (occurrence: US)
  Receive Date: 20210903
  Receipt Date: 20210903
  Transmission Date: 20211014
  Serious: No
  Sender: FDA-Public Use
  Company Number: US-NEXGEN PHARMA, INC.-2117995

PATIENT
  Age: 37 Year
  Sex: Male

DRUGS (4)
  1. CHENODAL [Suspect]
     Active Substance: CHENODIOL
     Indication: LIPID METABOLISM DISORDER
     Route: 048
     Dates: start: 20191128
  2. BENADRYL [Suspect]
     Active Substance: DIPHENHYDRAMINE HYDROCHLORIDE
  3. MAGNESIUM (UNSPECIFIED) [Concomitant]
     Active Substance: MAGNESIUM
  4. VITAMIN (UNSPECIFIED) [Concomitant]
     Route: 065

REACTIONS (5)
  - Vomiting [Unknown]
  - Insomnia [Unknown]
  - Psychotic disorder [Unknown]
  - Hypersensitivity [Unknown]
  - Nausea [Unknown]
